FAERS Safety Report 7011043-6 (Version None)
Quarter: 2010Q3

REPORT INFORMATION
  Report Type: 
  Country: None (occurrence: None)
  Receive Date: 20100923
  Receipt Date: 20081021
  Transmission Date: 20110219
  Serious: No
  Sender: FDA-Public Use
  Company Number: US-WYE-H06145008

PATIENT
  Sex: Female
  Weight: 79.45 kg

DRUGS (7)
  1. PREMARIN [Suspect]
     Indication: VULVOVAGINAL DRYNESS
     Dosage: 1 GRAM 2-3X PER WEEK
     Route: 067
     Dates: start: 20070425, end: 20080110
  2. TRICOR [Concomitant]
  3. HYDROCHLOROTHIAZIDE [Concomitant]
  4. LASIX [Concomitant]
  5. LISINOPRIL [Concomitant]
  6. LIPITOR [Concomitant]
  7. CIMETIDINE [Concomitant]

REACTIONS (1)
  - VISION BLURRED [None]
